FAERS Safety Report 18723402 (Version 1)
Quarter: 2021Q1

REPORT INFORMATION
  Report Type: Spontaneous
  Country: US (occurrence: US)
  Receive Date: 20210108
  Receipt Date: 20210108
  Transmission Date: 20210419
  Serious: No
  Sender: FDA-Public Use
  Company Number: None

PATIENT
  Sex: Female

DRUGS (1)
  1. BOTOX [Suspect]
     Active Substance: ONABOTULINUMTOXINA
     Indication: MIGRAINE
     Dosage: ?          OTHER DOSE:155 UNITS ;OTHER FREQUENCY:EVERY 90 DAYS ;?
     Route: 030
     Dates: start: 202008, end: 202010

REACTIONS (3)
  - Headache [None]
  - Eyelid ptosis [None]
  - Condition aggravated [None]
